FAERS Safety Report 19574657 (Version 1)
Quarter: 2021Q3

REPORT INFORMATION
  Report Type: Spontaneous
  Country: GB (occurrence: GB)
  Receive Date: 20210719
  Receipt Date: 20210719
  Transmission Date: 20211014
  Serious: Yes (Other)
  Sender: FDA-Public Use
  Company Number: GB-LUPIN PHARMACEUTICALS INC.-2021-12803

PATIENT
  Sex: Female
  Weight: 3.28 kg

DRUGS (4)
  1. DEXTROSE. [Suspect]
     Active Substance: DEXTROSE
     Indication: STARVATION KETOACIDOSIS
     Dosage: UNK
     Route: 064
  2. HYDROCORTISONE. [Suspect]
     Active Substance: HYDROCORTISONE
     Indication: COVID-19
     Dosage: UNK
     Route: 064
  3. INSULIN [Suspect]
     Active Substance: INSULIN NOS
     Indication: EUGLYCAEMIC DIABETIC KETOACIDOSIS
     Dosage: UNK
     Route: 064
  4. LOW MOLECULAR WEIGHT HEPARIN [Suspect]
     Active Substance: UNSPECIFIED INGREDIENT
     Indication: PROPHYLAXIS
     Dosage: UNK
     Route: 064

REACTIONS (2)
  - Foetal exposure during pregnancy [Unknown]
  - Premature baby [Unknown]
